FAERS Safety Report 7357720-9 (Version None)
Quarter: 2011Q1

REPORT INFORMATION
  Report Type: 
  Country: None (occurrence: None)
  Receive Date: 20110317
  Receipt Date: 20110310
  Transmission Date: 20110831
  Serious: Yes (Hospitalization, Other)
  Sender: FDA-Public Use
  Company Number: US-ELI_LILLY_AND_COMPANY-US201101003781

PATIENT
  Sex: Female

DRUGS (11)
  1. PAXIL [Concomitant]
     Dosage: UNK, UNKNOWN
     Route: 065
  2. METHOTREXATE [Concomitant]
     Dosage: UNK, UNKNOWN
     Route: 065
  3. PREDNISONE [Concomitant]
     Dosage: UNK, UNKNOWN
     Route: 065
  4. FORTEO [Suspect]
     Indication: OSTEOPOROSIS
     Dosage: 20 UG, DAILY (1/D)
     Route: 065
     Dates: start: 20100301
  5. CITRACAL + D [Concomitant]
     Dosage: UNK, UNKNOWN
     Route: 065
  6. ACETAMINOPHEN AND HYDROCODONE BITARTRATE [Concomitant]
     Dosage: UNK, UNKNOWN
     Route: 065
  7. FUROSEMIDE [Concomitant]
     Dosage: UNK, UNKNOWN
     Route: 065
  8. KEFLEX [Concomitant]
     Dosage: UNK, UNKNOWN (BEFORE DENTAL WORK)
     Route: 065
  9. VITAMIN D [Concomitant]
     Dosage: UNK, UNKNOWN
     Route: 065
  10. CENTRUM SILVER [Concomitant]
     Dosage: UNK, UNKNOWN
     Route: 065
  11. DOXEPIN [Concomitant]
     Dosage: UNK, UNKNOWN
     Route: 065

REACTIONS (2)
  - KNEE ARTHROPLASTY [None]
  - BACK PAIN [None]
